FAERS Safety Report 24462504 (Version 1)
Quarter: 2024Q4

REPORT INFORMATION
  Report Type: Spontaneous
  Country: SA (occurrence: SA)
  Receive Date: 20241018
  Receipt Date: 20241018
  Transmission Date: 20250114
  Serious: Yes (Other)
  Sender: RANBAXY
  Company Number: SA-SUN PHARMACEUTICAL INDUSTRIES LTD-2024R1-473522

PATIENT
  Age: 32 Year
  Sex: Female

DRUGS (2)
  1. CHLORZOXAZONE [Suspect]
     Active Substance: CHLORZOXAZONE
     Indication: Back pain
     Dosage: UNK
     Route: 065
  2. ACETAMINOPHEN [Concomitant]
     Active Substance: ACETAMINOPHEN
     Indication: Back pain
     Dosage: UNK
     Route: 065

REACTIONS (1)
  - Fixed eruption [Unknown]
